FAERS Safety Report 25823767 (Version 1)
Quarter: 2025Q3

REPORT INFORMATION
  Report Type: Spontaneous
  Country: US (occurrence: None)
  Receive Date: 20250918
  Receipt Date: 20250918
  Transmission Date: 20251020
  Serious: Yes (Life-Threatening, Hospitalization)
  Sender: FDA-CTU
  Company Number: None

PATIENT
  Age: 55 Year
  Sex: Female
  Weight: 69 kg

DRUGS (1)
  1. GLOFITAMAB-GXBM [Suspect]
     Active Substance: GLOFITAMAB-GXBM
     Indication: Diffuse large B-cell lymphoma recurrent
     Route: 041
     Dates: start: 20250912

REACTIONS (4)
  - Cytokine release syndrome [None]
  - Facial paresis [None]
  - Hemiparesis [None]
  - Haemorrhagic stroke [None]

NARRATIVE: CASE EVENT DATE: 20250913
